FAERS Safety Report 24975957 (Version 1)
Quarter: 2025Q1

REPORT INFORMATION
  Report Type: Report from Study
  Country: IL (occurrence: IL)
  Receive Date: 20250217
  Receipt Date: 20250217
  Transmission Date: 20250408
  Serious: Yes (Other)
  Sender: JOHNSON AND JOHNSON
  Company Number: IL-JNJFOC-20250225970

PATIENT
  Age: 72 Year
  Sex: Female

DRUGS (4)
  1. TALVEY [Suspect]
     Active Substance: TALQUETAMAB-TGVS
     Indication: Plasma cell myeloma
     Route: 065
     Dates: start: 20220928, end: 20220928
  2. TALVEY [Suspect]
     Active Substance: TALQUETAMAB-TGVS
     Route: 065
     Dates: start: 20220930, end: 20220930
  3. TALVEY [Suspect]
     Active Substance: TALQUETAMAB-TGVS
     Route: 065
     Dates: start: 20221006, end: 20221006
  4. TALVEY [Suspect]
     Active Substance: TALQUETAMAB-TGVS
     Route: 065
     Dates: start: 20221013, end: 20221013

REACTIONS (6)
  - Febrile neutropenia [Recovered/Resolved]
  - Cytokine release syndrome [Recovered/Resolved]
  - Neutrophil count decreased [Recovered/Resolved]
  - Oral pain [Recovered/Resolved]
  - Dysgeusia [Not Recovered/Not Resolved]
  - Hypervolaemia [Recovered/Resolved]

NARRATIVE: CASE EVENT DATE: 20220930
